FAERS Safety Report 6647220-3 (Version None)
Quarter: 2010Q1

REPORT INFORMATION
  Report Type: 
  Country: None (occurrence: None)
  Receive Date: 20100323
  Receipt Date: 20100316
  Transmission Date: 20100710
  Serious: Yes (Other)
  Sender: FDA-Public Use
  Company Number: A0832273A

PATIENT
  Age: 52 Year
  Sex: Female

DRUGS (4)
  1. TREXIMET [Suspect]
     Indication: HEADACHE
     Dosage: 1TAB AS REQUIRED
     Route: 048
     Dates: start: 20080101, end: 20091130
  2. SYNTHROID [Concomitant]
  3. CALCIUM CHANNEL BLOCKER [Concomitant]
  4. EVOXAC [Concomitant]

REACTIONS (1)
  - ARTERIOSPASM CORONARY [None]
